FAERS Safety Report 5886341-X (Version None)
Quarter: 2008Q3

REPORT INFORMATION
  Report Type: 
  Country: None (occurrence: None)
  Receive Date: 20080917
  Receipt Date: 20080909
  Transmission Date: 20090109
  Serious: Yes (Other)
  Sender: FDA-Public Use
  Company Number: B0536484A

PATIENT
  Age: 72 Year
  Sex: Female

DRUGS (2)
  1. AUGMENTIN '125' [Suspect]
     Indication: DRUG USE FOR UNKNOWN INDICATION
     Route: 042
     Dates: start: 20010101, end: 20010101
  2. SERUM GLUCOSE [Concomitant]
     Route: 042
     Dates: start: 20010101, end: 20010101

REACTIONS (2)
  - DRUG CHEMICAL INCOMPATIBILITY [None]
  - EXTRAPYRAMIDAL DISORDER [None]
